FAERS Safety Report 12707025 (Version 2)
Quarter: 2016Q3

REPORT INFORMATION
  Report Type: Report from Study
  Country: DE (occurrence: DE)
  Receive Date: 20160901
  Receipt Date: 20160921
  Transmission Date: 20161109
  Serious: Yes (Hospitalization, Other)
  Sender: FDA-Public Use
  Company Number: PHHY2016DE118104

PATIENT
  Sex: Female

DRUGS (4)
  1. TIZANIDINE. [Concomitant]
     Active Substance: TIZANIDINE
     Indication: PRODUCT USED FOR UNKNOWN INDICATION
     Dosage: 2 MG, BID (0-0-0-2)
     Route: 065
  2. FAMPYRA [Concomitant]
     Active Substance: DALFAMPRIDINE
     Indication: PRODUCT USED FOR UNKNOWN INDICATION
     Dosage: 1 DF, BID (1-0-0-1)
     Route: 065
  3. GILENYA [Suspect]
     Active Substance: FINGOLIMOD HYDROCHLORIDE
     Indication: MULTIPLE SCLEROSIS
     Dosage: 0.5 MG, QD
     Route: 048
     Dates: start: 20111025
  4. FLUOXETINE [Concomitant]
     Active Substance: FLUOXETINE HYDROCHLORIDE
     Indication: PRODUCT USED FOR UNKNOWN INDICATION
     Dosage: 40 MG, QD (0-0-0-1)
     Route: 065

REACTIONS (24)
  - Loss of consciousness [Unknown]
  - Multiple sclerosis relapse [Unknown]
  - Malnutrition [Unknown]
  - General physical health deterioration [Unknown]
  - Neutrophil percentage increased [Unknown]
  - Blood cholesterol increased [Unknown]
  - Eosinophil percentage decreased [Recovered/Resolved]
  - Mydriasis [Unknown]
  - Foaming at mouth [Unknown]
  - Epilepsy [Recovered/Resolved]
  - Pupillary reflex impaired [Unknown]
  - Hypertonia [Recovered/Resolved]
  - Blood sodium increased [Unknown]
  - C-reactive protein increased [Unknown]
  - Somnolence [Unknown]
  - Lymphocyte percentage decreased [Unknown]
  - Bloody discharge [Unknown]
  - White blood cell count increased [Recovered/Resolved]
  - Haemoglobin decreased [Recovered/Resolved]
  - Blood creatine phosphokinase increased [Unknown]
  - Tongue biting [Unknown]
  - Blood creatine phosphokinase MB increased [Unknown]
  - CSF lactate increased [Unknown]
  - Basophil count decreased [Unknown]

NARRATIVE: CASE EVENT DATE: 20130613
